FAERS Safety Report 5623702-8 (Version None)
Quarter: 2008Q1

REPORT INFORMATION
  Report Type: 
  Country: None (occurrence: None)
  Receive Date: 20080212
  Receipt Date: 20080117
  Transmission Date: 20080703
  Serious: Yes (Life-Threatening, Hospitalization)
  Sender: FDA-Public Use
  Company Number: US-GILEAD-2008-0015039

PATIENT
  Sex: Male

DRUGS (1)
  1. ATRIPLA [Suspect]
     Dosage: NI
     Route: 065
     Dates: start: 20071101

REACTIONS (2)
  - HEPATIC ENZYME INCREASED [None]
  - HEPATIC FAILURE [None]
